FAERS Safety Report 9151985 (Version 1)
Quarter: 2013Q1

REPORT INFORMATION
  Report Type: Spontaneous
  Country: CA (occurrence: CA)
  Receive Date: 20130308
  Receipt Date: 20130308
  Transmission Date: 20140127
  Serious: Yes (Death, Hospitalization, Other)
  Sender: FDA-Public Use
  Company Number: CA-ELI_LILLY_AND_COMPANY-CA201303000811

PATIENT
  Age: 83 Year
  Sex: Female

DRUGS (11)
  1. FORTEO [Suspect]
     Dosage: 20 UG, QD
     Route: 058
     Dates: start: 20110718, end: 20120312
  2. FOSAMAX [Concomitant]
  3. ATACAND [Concomitant]
  4. OMEPRAZOLE [Concomitant]
  5. WARFARIN [Concomitant]
  6. FERROUS SULFATE [Concomitant]
  7. AMIODARONE [Concomitant]
  8. FUROSEMIDE [Concomitant]
  9. TIAZAC                             /00489702/ [Concomitant]
  10. TYLENOL                                 /SCH/ [Concomitant]
  11. VENLAFAXINE [Concomitant]

REACTIONS (3)
  - Death [Fatal]
  - Dyspnoea [Unknown]
  - Myocardial infarction [Unknown]
